FAERS Safety Report 7371573 (Version 4)
Quarter: 2013Q3

REPORT INFORMATION
  Report Type: Spontaneous
  Country: US (occurrence: US)
  Receive Date: 20100430
  Receipt Date: 20130930
  Transmission Date: 20140515
  Serious: Yes (Hospitalization)
  Sender: FDA-Public Use
  Company Number: US-RANBAXY-2010US-33354

PATIENT
  Age: 67 Year
  Sex: Female
  Weight: 64.5 kg

DRUGS (3)
  1. RAMIPRIL [Suspect]
     Indication: HYPERTENSION
     Dosage: 5 MG/DAY
     Route: 048
  2. ADALIMUMAB [Concomitant]
     Indication: RHEUMATOID ARTHRITIS
     Dosage: UNK
     Route: 065
  3. ADALIMUMAB [Concomitant]
     Indication: PSORIATIC ARTHROPATHY

REACTIONS (2)
  - Pustular psoriasis [Recovered/Resolved]
  - Pyrexia [Recovered/Resolved]
